FAERS Safety Report 19626226 (Version 2)
Quarter: 2021Q3

REPORT INFORMATION
  Report Type: Spontaneous
  Country: US (occurrence: US)
  Receive Date: 20210728
  Receipt Date: 20210902
  Transmission Date: 20211014
  Serious: Yes (Death)
  Sender: FDA-Public Use
  Company Number: US-ROCHE-2878866

PATIENT
  Age: 90 Year
  Sex: Male

DRUGS (8)
  1. FLUOROURACIL. [Concomitant]
     Active Substance: FLUOROURACIL
  2. ERIVEDGE [Suspect]
     Active Substance: VISMODEGIB
     Indication: BASAL CELL CARCINOMA
     Dosage: TAKE 1 CAPSULE BY MOUTH DAILY AS DIRECTED
     Route: 048
  3. VIREAD [Concomitant]
     Active Substance: TENOFOVIR DISOPROXIL FUMARATE
  4. FINASTERIDE. [Concomitant]
     Active Substance: FINASTERIDE
  5. AMOXICILLIN. [Concomitant]
     Active Substance: AMOXICILLIN
  6. DONEPEZIL. [Concomitant]
     Active Substance: DONEPEZIL
  7. VIRTUSSIN AC [Concomitant]
     Active Substance: CODEINE PHOSPHATE\GUAIFENESIN
  8. TROSPIUM CHLORIDE. [Concomitant]
     Active Substance: TROSPIUM CHLORIDE

REACTIONS (1)
  - Death [Fatal]

NARRATIVE: CASE EVENT DATE: 20210703
